FAERS Safety Report 16809369 (Version 2)
Quarter: 2020Q4

REPORT INFORMATION
  Report Type: Spontaneous
  Country: CH (occurrence: CH)
  Receive Date: 20190916
  Receipt Date: 20201209
  Transmission Date: 20210113
  Serious: Yes (Death, Hospitalization, Other)
  Sender: FDA-Public Use
  Company Number: CH-TEVA-2019-CH-1108420

PATIENT
  Sex: Female

DRUGS (15)
  1. ZINAT [Suspect]
     Active Substance: CEFUROXIME AXETIL
     Route: 048
     Dates: start: 20190826, end: 20190831
  2. SPORANOX [Interacting]
     Active Substance: ITRACONAZOLE
     Dosage: 400 MILLIGRAM DAILY;
     Route: 065
  3. CLEXANE [Concomitant]
     Active Substance: ENOXAPARIN SODIUM
     Route: 058
     Dates: start: 20190821
  4. CIPROFLOXACIN. [Suspect]
     Active Substance: CIPROFLOXACIN
     Route: 048
     Dates: start: 20190823, end: 20190828
  5. DAFALGAN [Concomitant]
     Active Substance: ACETAMINOPHEN
     Dosage: AS NECESSARY
     Dates: start: 20190821
  6. MEPHAMESONE [Interacting]
     Active Substance: DEXAMETHASONE
     Route: 042
  7. NEXIUM [Suspect]
     Active Substance: ESOMEPRAZOLE MAGNESIUM
     Route: 048
  8. TAGRISSO [Interacting]
     Active Substance: OSIMERTINIB
     Route: 048
     Dates: start: 20190807, end: 20190825
  9. BACTRIM [Suspect]
     Active Substance: SULFAMETHOXAZOLE\TRIMETHOPRIM
     Route: 048
  10. MOTILIUM [Concomitant]
     Active Substance: DOMPERIDONE
     Route: 060
  11. TAGRISSO [Interacting]
     Active Substance: OSIMERTINIB
     Route: 048
     Dates: start: 20190826
  12. TRIUMEQ [Suspect]
     Active Substance: ABACAVIR SULFATE\DOLUTEGRAVIR SODIUM\LAMIVUDINE
     Route: 048
  13. VALTREX [Suspect]
     Active Substance: VALACYCLOVIR HYDROCHLORIDE
     Route: 065
     Dates: start: 20190823, end: 20190830
  14. LEUCOVORINE CALCIUM [Concomitant]
     Active Substance: LEUCOVORIN CALCIUM
     Route: 048
  15. PASPERTIN [Concomitant]
     Dates: start: 20190826, end: 20190826

REACTIONS (2)
  - Pancytopenia [Not Recovered/Not Resolved]
  - Drug interaction [Not Recovered/Not Resolved]
